FAERS Safety Report 17459112 (Version 1)
Quarter: 2020Q1

REPORT INFORMATION
  Report Type: Spontaneous
  Country: FR (occurrence: FR)
  Receive Date: 20200225
  Receipt Date: 20200225
  Transmission Date: 20200409
  Serious: Yes (Other)
  Sender: FDA-Public Use
  Company Number: FR-PFIZER INC-2020077138

PATIENT
  Age: 49 Year
  Sex: Male
  Weight: 63.6 kg

DRUGS (6)
  1. MADOPAR 250 [Concomitant]
     Indication: PARKINSON^S DISEASE
     Dosage: 7 DF, DAILY (200 MG / 50 MG) 250 CAPSULE, 1 DF EVERY 2 HOURS FROM 08:00 TO 22:00
     Route: 048
     Dates: start: 201809
  2. AZILECT [Concomitant]
     Active Substance: RASAGILINE MESYLATE
     Indication: PARKINSON^S DISEASE
     Dosage: 1 MG, 1X/DAY (IN THE EVENING)
     Route: 048
     Dates: start: 2019
  3. EFFEXOR LP [Suspect]
     Active Substance: VENLAFAXINE HYDROCHLORIDE
     Indication: ANTIDEPRESSANT THERAPY
     Dosage: 150 MG, 1X/DAY
     Route: 048
     Dates: start: 201803, end: 201911
  4. MADOPAR 62.5 [Concomitant]
     Active Substance: BENSERAZIDE HYDROCHLORIDE\LEVODOPA
     Indication: PARKINSON^S DISEASE
     Dosage: 2 DF, 1X/DAY (50 MG / 12.5 MG) 62.5 CAPSULES, 2 DF AT 14:00)
     Route: 048
     Dates: start: 201809
  5. MODOPAR 125 [Concomitant]
     Active Substance: BENSERAZIDE HYDROCHLORIDE\LEVODOPA
     Indication: PARKINSON^S DISEASE
     Dosage: 1 DF, AS NEEDED (100 MG / 25 MG) 125 CAPSULE, 1 DF, 3 MAX IF BLOCKING)
     Route: 048
     Dates: start: 201809
  6. SINEMET LP [Concomitant]
     Active Substance: CARBIDOPA\LEVODOPA
     Indication: PARKINSON^S DISEASE
     Dosage: 1 DF, 1X/DAY (AT 23:00, 200 MG/50 MG)
     Route: 048
     Dates: start: 2016

REACTIONS (1)
  - Psychotic disorder [Not Recovered/Not Resolved]

NARRATIVE: CASE EVENT DATE: 20191215
